FAERS Safety Report 4386831-5 (Version None)
Quarter: 2004Q2

REPORT INFORMATION
  Report Type: 
  Country: None (occurrence: None)
  Receive Date: 20040630
  Receipt Date: 20040621
  Transmission Date: 20050107
  Serious: Yes (Other)
  Sender: FDA-Public Use
  Company Number: US-MERCK-0406USA02040

PATIENT

DRUGS (6)
  1. FOSAMAX [Suspect]
     Indication: OSTEOPOROSIS
     Route: 048
  2. LEXAPRO [Concomitant]
     Route: 065
  3. NEXIUM [Concomitant]
     Route: 065
  4. VICON FORTE [Concomitant]
     Route: 065
  5. DETROL [Concomitant]
     Route: 065
  6. AMBIEN [Concomitant]
     Route: 065

REACTIONS (2)
  - CEREBROVASCULAR ACCIDENT [None]
  - DYSPHAGIA [None]
